FAERS Safety Report 18100769 (Version 2)
Quarter: 2020Q4

REPORT INFORMATION
  Report Type: Report from Study
  Country: None (occurrence: ES)
  Receive Date: 20200731
  Receipt Date: 20201024
  Transmission Date: 20210113
  Serious: Yes (Hospitalization)
  Sender: FDA-Public Use
  Company Number: ES-ABBVIE-20K-144-3505654-00

PATIENT
  Age: 64 Year
  Sex: Male
  Weight: 99 kg

DRUGS (15)
  1. PREDNISONA [Concomitant]
     Active Substance: PREDNISONE
     Indication: COLITIS ULCERATIVE
     Route: 048
     Dates: start: 20160110
  2. PAROXETINE. [Concomitant]
     Active Substance: PAROXETINE
     Indication: MIXED ANXIETY AND DEPRESSIVE DISORDER
  3. TRAMADOL. [Concomitant]
     Active Substance: TRAMADOL
     Indication: ARTHRALGIA
     Route: 048
     Dates: start: 20170119
  4. USTEKINUMAB [Concomitant]
     Active Substance: USTEKINUMAB
     Route: 058
     Dates: start: 20190207
  5. ZOLPIDEM [Concomitant]
     Active Substance: ZOLPIDEM TARTRATE
     Indication: INSOMNIA
     Route: 048
     Dates: start: 20160726
  6. ALENDRONIC ACID [Concomitant]
     Active Substance: ALENDRONIC ACID
     Indication: OSTEOPOROSIS PROPHYLAXIS
     Route: 048
     Dates: start: 20151103
  7. USTEKINUMAB [Concomitant]
     Active Substance: USTEKINUMAB
     Indication: COLITIS ULCERATIVE
     Route: 058
     Dates: start: 20160126, end: 20160828
  8. ENALAPRIL [Concomitant]
     Active Substance: ENALAPRIL
     Indication: HYPERTENSION
     Route: 048
     Dates: start: 20140930
  9. PAROXETINE. [Concomitant]
     Active Substance: PAROXETINE
     Indication: MIXED ANXIETY AND DEPRESSIVE DISORDER
     Route: 048
     Dates: start: 20160419
  10. MASTICAL D [Concomitant]
     Indication: MINERAL SUPPLEMENTATION
     Route: 048
     Dates: start: 20131118
  11. METHOTREXATE. [Concomitant]
     Active Substance: METHOTREXATE
     Indication: ARTHRITIS
     Route: 048
     Dates: start: 20080410
  12. STELARA [Concomitant]
     Active Substance: USTEKINUMAB
     Indication: ARTHRALGIA
     Dosage: 0,1,3,3 MONTHS
     Route: 048
     Dates: start: 20160121
  13. HUMIRA [Suspect]
     Active Substance: ADALIMUMAB
     Indication: COLITIS ULCERATIVE
     Route: 058
     Dates: start: 20090528, end: 20141118
  14. MEZAVANT [Concomitant]
     Active Substance: MESALAMINE
     Indication: COLITIS ULCERATIVE
     Route: 048
     Dates: start: 2010
  15. USTEKINUMAB [Concomitant]
     Active Substance: USTEKINUMAB
     Route: 058
     Dates: start: 20170202, end: 20190207

REACTIONS (1)
  - Bile duct stone [Recovered/Resolved]

NARRATIVE: CASE EVENT DATE: 20200426
